FAERS Safety Report 11092460 (Version 2)
Quarter: 2015Q3

REPORT INFORMATION
  Report Type: Report from Study
  Country: US (occurrence: US)
  Receive Date: 20150506
  Receipt Date: 20150901
  Transmission Date: 20151125
  Serious: Yes (Death, Other)
  Sender: FDA-Public Use
  Company Number: US-TEVA-559255USA

PATIENT
  Sex: Male

DRUGS (2)
  1. CLOZAPINE. [Suspect]
     Active Substance: CLOZAPINE
     Indication: SCHIZOPHRENIA
     Route: 048
  2. RISPERDAL CONSTA [Concomitant]
     Active Substance: RISPERIDONE

REACTIONS (2)
  - Diabetic ketoacidosis [Fatal]
  - Diabetes mellitus [Fatal]
